FAERS Safety Report 17933897 (Version 1)
Quarter: 2020Q2

REPORT INFORMATION
  Report Type: Spontaneous
  Country: US (occurrence: US)
  Receive Date: 20200624
  Receipt Date: 20200624
  Transmission Date: 20200714
  Serious: Yes (Hospitalization)
  Sender: FDA-Public Use
  Company Number: US-CADILA HEALTHCARE LIMITED-US-ZYDUS-052257

PATIENT

DRUGS (1)
  1. METFORMIN [Suspect]
     Active Substance: METFORMIN HYDROCHLORIDE
     Indication: PRODUCT USED FOR UNKNOWN INDICATION
     Dosage: 15 GRAM (METFORMIN STRENGTH: 500MG)
     Route: 048

REACTIONS (3)
  - Lactic acidosis [Recovered/Resolved]
  - Intentional overdose [Unknown]
  - Hyperkalaemia [Unknown]
